FAERS Safety Report 7814794-6 (Version None)
Quarter: 2011Q4

REPORT INFORMATION
  Report Type: 
  Country: None (occurrence: None)
  Receive Date: 20111012
  Receipt Date: 20111003
  Transmission Date: 20120403
  Serious: Yes (Disabling)
  Sender: FDA-Public Use
  Company Number: 2011MA007835

PATIENT
  Age: 75 Year
  Sex: Male

DRUGS (5)
  1. ASPIRIN [Concomitant]
  2. ONDANSETRON [Concomitant]
  3. DEXAMETHASONE [Concomitant]
  4. IRINOTECAN HYDROCHLORIDE [Suspect]
     Dosage: 260 MG; ;IV
     Route: 042
  5. FLUOROURACIL [Suspect]
     Dosage: 600 MG;
     Dates: start: 20101220

REACTIONS (1)
  - PULMONARY FIBROSIS [None]
